FAERS Safety Report 25646064 (Version 1)
Quarter: 2025Q3

REPORT INFORMATION
  Report Type: Spontaneous
  Country: US (occurrence: US)
  Receive Date: 20250805
  Receipt Date: 20250805
  Transmission Date: 20251021
  Serious: Yes (Life-Threatening, Hospitalization, Disabling)
  Sender: SANDOZ
  Company Number: US-MLMSERVICE-20250725-PI590211-00306-1

PATIENT
  Age: 47 Year
  Sex: Female

DRUGS (6)
  1. MYCOPHENOLATE SODIUM [Suspect]
     Active Substance: MYCOPHENOLATE SODIUM
     Indication: Immunosuppressant drug therapy
     Route: 065
  2. PREDNISONE [Suspect]
     Active Substance: PREDNISONE
     Indication: Immunosuppressant drug therapy
     Route: 065
  3. TACROLIMUS [Suspect]
     Active Substance: TACROLIMUS
     Indication: Immunosuppressant drug therapy
     Route: 065
  4. THYMOGLOBULIN [Suspect]
     Active Substance: LAPINE T-LYMPHOCYTE IMMUNE GLOBULIN
     Indication: Immunosuppressant drug therapy
     Route: 065
  5. SULFAMETHOXAZOLE\TRIMETHOPRIM [Concomitant]
     Active Substance: SULFAMETHOXAZOLE\TRIMETHOPRIM
     Indication: Antifungal prophylaxis
     Route: 065
  6. VALGANCICLOVIR [Concomitant]
     Active Substance: VALGANCICLOVIR
     Indication: Antiviral prophylaxis
     Route: 065

REACTIONS (12)
  - Bacterial endophthalmitis [Recovering/Resolving]
  - Blindness [Recovering/Resolving]
  - Visual field defect [Recovering/Resolving]
  - Chorioretinitis [Recovering/Resolving]
  - Retinal haemorrhage [Recovering/Resolving]
  - Prosthetic valve endocarditis [Recovering/Resolving]
  - Endocarditis [Recovering/Resolving]
  - Mycoplasma infection [Recovering/Resolving]
  - Cardiac valve abscess [Recovering/Resolving]
  - Septic cerebral embolism [Recovering/Resolving]
  - Atrioventricular block complete [Recovering/Resolving]
  - Impaired healing [Recovering/Resolving]
